FAERS Safety Report 10237230 (Version 1)
Quarter: 2014Q2

REPORT INFORMATION
  Report Type: Spontaneous
  Country: US (occurrence: US)
  Receive Date: 20140613
  Receipt Date: 20140613
  Transmission Date: 20141212
  Serious: Yes (Other)
  Sender: FDA-Public Use
  Company Number: US-TEVA-487417USA

PATIENT
  Sex: Female
  Weight: 59.47 kg

DRUGS (2)
  1. MERCAPTOPURINE [Suspect]
  2. HUMIRA [Suspect]
     Indication: CROHN^S DISEASE
     Dates: start: 201310

REACTIONS (3)
  - Anaemia [Recovered/Resolved]
  - Crohn^s disease [Unknown]
  - Drug level increased [Unknown]
